FAERS Safety Report 10480703 (Version 1)
Quarter: 2014Q3

REPORT INFORMATION
  Report Type: Spontaneous
  Country: DE (occurrence: None)
  Receive Date: 20140925
  Receipt Date: 20140925
  Transmission Date: 20150326
  Serious: Yes (Hospitalization)
  Sender: FDA-Public Use
  Company Number: NGS_02574_2014

PATIENT
  Age: 74 Year
  Sex: Male

DRUGS (2)
  1. QUTENZA [Suspect]
     Active Substance: CAPSAICIN
     Indication: COMPLEX REGIONAL PAIN SYNDROME
     Route: 062
     Dates: start: 20140911, end: 20140911
  2. QUTENZA [Suspect]
     Active Substance: CAPSAICIN
     Indication: OFF LABEL USE
     Route: 062
     Dates: start: 20140911, end: 20140911

REACTIONS (5)
  - Application site swelling [None]
  - Application site cold feeling [None]
  - Drug effect decreased [None]
  - Application site erythema [None]
  - Application site pain [None]

NARRATIVE: CASE EVENT DATE: 20140911
